FAERS Safety Report 9102755 (Version 3)
Quarter: 2013Q1

REPORT INFORMATION
  Report Type: Spontaneous
  Country: US (occurrence: US)
  Receive Date: 20130220
  Receipt Date: 20130308
  Transmission Date: 20140127
  Serious: No
  Sender: FDA-Public Use
  Company Number: US-TEVA-386862USA

PATIENT
  Age: 70 Year
  Sex: Female

DRUGS (1)
  1. CEFALEXIN [Suspect]
     Indication: OSTEOMYELITIS
     Dosage: 2000 MILLIGRAM DAILY;
     Dates: start: 20130213

REACTIONS (6)
  - Renal pain [Unknown]
  - Somnolence [Unknown]
  - Poor quality sleep [Unknown]
  - Fatigue [Unknown]
  - Insomnia [Unknown]
  - Mania [Unknown]
